FAERS Safety Report 11277566 (Version 1)
Quarter: 2015Q3

REPORT INFORMATION
  Report Type: Spontaneous
  Country: US (occurrence: US)
  Receive Date: 20150716
  Receipt Date: 20150716
  Transmission Date: 20151125
  Serious: Yes (Congenital Anomaly, Other)
  Sender: FDA-Public Use
  Company Number: US-ABBVIE-15P-163-1425938-00

PATIENT
  Sex: Female

DRUGS (1)
  1. DEPAKOTE [Suspect]
     Active Substance: DIVALPROEX SODIUM
     Indication: MATERNAL EXPOSURE TIMING UNSPECIFIED
     Route: 064

REACTIONS (21)
  - Polymicrogyria [Unknown]
  - Mental impairment [Unknown]
  - Dysmorphism [Unknown]
  - Psychomotor skills impaired [Unknown]
  - Convulsion neonatal [Unknown]
  - Activities of daily living impaired [Unknown]
  - Pain [Unknown]
  - Economic problem [Unknown]
  - Head circumference abnormal [Unknown]
  - Craniosynostosis [Unknown]
  - Affective disorder [Unknown]
  - Fine motor skill dysfunction [Unknown]
  - Foetal exposure during pregnancy [Unknown]
  - Autism [Unknown]
  - Congenital nose malformation [Unknown]
  - Drug withdrawal syndrome neonatal [Unknown]
  - Emotional distress [Unknown]
  - Congenital oral malformation [Unknown]
  - Coordination abnormal [Unknown]
  - Anhedonia [Unknown]
  - Oppositional defiant disorder [Unknown]
